FAERS Safety Report 15364845 (Version 1)
Quarter: 2018Q3

REPORT INFORMATION
  Report Type: Spontaneous
  Country: GB (occurrence: GB)
  Receive Date: 20180910
  Receipt Date: 20180910
  Transmission Date: 20181010
  Serious: Yes (Other)
  Sender: FDA-Public Use
  Company Number: GB-009507513-1809GBR001803

PATIENT
  Sex: Female

DRUGS (2)
  1. SERTRALINE HYDROCHLORIDE. [Suspect]
     Active Substance: SERTRALINE HYDROCHLORIDE
     Indication: PRODUCT USED FOR UNKNOWN INDICATION
     Dosage: 100 MG
     Dates: start: 20180424, end: 20180606
  2. SITAGLIPTIN PHOSPHATE [Suspect]
     Active Substance: SITAGLIPTIN PHOSPHATE
     Indication: PRODUCT USED FOR UNKNOWN INDICATION
     Dosage: 100 MG

REACTIONS (11)
  - Vomiting [Unknown]
  - Disorientation [Unknown]
  - Drug dispensing error [Unknown]
  - Insomnia [Unknown]
  - Nausea [Unknown]
  - Blood pressure increased [Unknown]
  - Dysuria [Unknown]
  - Hypoaesthesia [Unknown]
  - Heart rate irregular [Unknown]
  - Diarrhoea [Unknown]
  - Tremor [Unknown]

NARRATIVE: CASE EVENT DATE: 20180424
